FAERS Safety Report 18323874 (Version 2)
Quarter: 2020Q4

REPORT INFORMATION
  Report Type: Report from Study
  Country: US (occurrence: US)
  Receive Date: 20200928
  Receipt Date: 20201005
  Transmission Date: 20210113
  Serious: Yes (Hospitalization)
  Sender: FDA-Public Use
  Company Number: US-JNJFOC-A-NJ2018-172387

PATIENT
  Age: 71 Year
  Sex: Female
  Weight: 67.96 kg

DRUGS (12)
  1. OPSUMIT [Suspect]
     Active Substance: MACITENTAN
     Indication: PULMONARY ARTERIAL HYPERTENSION
     Dosage: 10 MG, QD
     Route: 048
     Dates: start: 201804
  2. EXTRA STRENGTH TYLENOL PM [Concomitant]
     Active Substance: ACETAMINOPHEN\DIPHENHYDRAMINE HYDROCHLORIDE
  3. REMODULIN [Suspect]
     Active Substance: TREPROSTINIL
     Indication: PULMONARY ARTERIAL HYPERTENSION
     Dosage: .048 MCG/KG
     Route: 042
     Dates: start: 20170825
  4. OXYGEN. [Concomitant]
     Active Substance: OXYGEN
  5. NADOLOL. [Concomitant]
     Active Substance: NADOLOL
  6. REMODULIN [Suspect]
     Active Substance: TREPROSTINIL
     Dosage: .048 MCG/KG
     Route: 042
     Dates: start: 201708
  7. GABAPENTIN. [Concomitant]
     Active Substance: GABAPENTIN
  8. OPSUMIT [Suspect]
     Active Substance: MACITENTAN
     Dosage: 10 MG, QD
     Route: 048
  9. ADCIRCA [Concomitant]
     Active Substance: TADALAFIL
  10. REMODULIN [Suspect]
     Active Substance: TREPROSTINIL
     Dosage: .048 MCG/KG
     Route: 042
     Dates: start: 201708
  11. REMODULIN [Suspect]
     Active Substance: TREPROSTINIL
     Dosage: 52 NG/KG, PER MIN
     Route: 042
  12. LASIX [Concomitant]
     Active Substance: FUROSEMIDE

REACTIONS (47)
  - Product dose omission issue [Unknown]
  - Rash pruritic [Unknown]
  - Nasopharyngitis [Unknown]
  - Tinnitus [Unknown]
  - Oedema peripheral [Unknown]
  - Asthenia [Unknown]
  - Arthralgia [Unknown]
  - Catheter site pruritus [Unknown]
  - Lower respiratory tract infection [Not Recovered/Not Resolved]
  - Anaemia [Unknown]
  - Fluid retention [Unknown]
  - Paraesthesia [Unknown]
  - Nausea [Unknown]
  - Adverse event [Unknown]
  - Gait disturbance [Unknown]
  - Catheter site rash [Not Recovered/Not Resolved]
  - Weight decreased [Unknown]
  - Gastric disorder [Not Recovered/Not Resolved]
  - Condition aggravated [Unknown]
  - Diarrhoea [Unknown]
  - Peroneal nerve palsy [Unknown]
  - Fall [Unknown]
  - Myalgia [Unknown]
  - Nasal congestion [Unknown]
  - Pruritus [Unknown]
  - Neuropathy peripheral [Unknown]
  - Urinary tract infection [Unknown]
  - Mobility decreased [Unknown]
  - Irritable bowel syndrome [Not Recovered/Not Resolved]
  - Rash [Not Recovered/Not Resolved]
  - Blood potassium decreased [Unknown]
  - Medical procedure [Unknown]
  - Malaise [Unknown]
  - Heart rate decreased [Unknown]
  - Feeling cold [Unknown]
  - Joint swelling [Unknown]
  - Hypotension [Unknown]
  - Loss of consciousness [Recovered/Resolved]
  - Unevaluable event [Unknown]
  - Adverse food reaction [Unknown]
  - Decreased appetite [Unknown]
  - Pneumonia [Unknown]
  - Back pain [Unknown]
  - Walking aid user [Unknown]
  - Pain [Unknown]
  - Headache [Recovered/Resolved]
  - Urticaria [Not Recovered/Not Resolved]

NARRATIVE: CASE EVENT DATE: 201804
